FAERS Safety Report 8235497-2 (Version None)
Quarter: 2012Q1

REPORT INFORMATION
  Report Type: 
  Country: None (occurrence: None)
  Receive Date: 20120326
  Receipt Date: 20120312
  Transmission Date: 20120608
  Serious: Yes (Other)
  Sender: FDA-Public Use
  Company Number: DE-UCBSA-047427

PATIENT
  Age: 6 Year
  Sex: Male
  Weight: 17.2 kg

DRUGS (4)
  1. LACOSAMIDE [Suspect]
     Dosage: 50 MG- 0 - 50 MG
  2. VIMPAT [Suspect]
     Route: 048
  3. INOVELON [Concomitant]
     Dosage: 200. 2 TIMES PER DAY. DAILY DOSE 400.
     Route: 048
  4. FRISIUM [Concomitant]
     Dosage: 5. 2 TIMES EVERYDAY. DAILY DOSE:10
     Route: 048

REACTIONS (1)
  - CONVULSION [None]
